FAERS Safety Report 4313628-4 (Version None)
Quarter: 2004Q1

REPORT INFORMATION
  Report Type: 
  Country: None (occurrence: None)
  Receive Date: 20040305
  Receipt Date: 20040225
  Transmission Date: 20041129
  Serious: Yes (Hospitalization)
  Sender: FDA-Public Use
  Company Number: TPA2004A00237

PATIENT
  Age: 76 Year
  Sex: Female

DRUGS (7)
  1. ACTOS [Suspect]
     Indication: DIABETES MELLITUS NON-INSULIN-DEPENDENT
     Dosage: 30 MG, 1 IN 1 D, PER ORAL
     Route: 048
  2. PLAVIX (CLOPIDOGREL SULFATE) (75 MILLIGRAM) [Concomitant]
  3. AVAPRO [Concomitant]
  4. TYLENOL [Concomitant]
  5. METFORMIN (METFORMIN) (500 MILLIGRAM) [Concomitant]
  6. LOTREL (LOTREL) [Concomitant]
  7. TOPROL XL (METOPROLOL SUCCINATE) (50 MILLIGRAM) [Concomitant]

REACTIONS (6)
  - ABDOMINAL DISCOMFORT [None]
  - CHEST PAIN [None]
  - DIZZINESS [None]
  - DYSPEPSIA [None]
  - EPIGASTRIC DISCOMFORT [None]
  - HEART RATE INCREASED [None]
